FAERS Safety Report 8480355-1 (Version None)
Quarter: 2012Q3

REPORT INFORMATION
  Report Type: 
  Country: None (occurrence: None)
  Receive Date: 20120701
  Receipt Date: 20120619
  Transmission Date: 20120928
  Serious: Yes (Other)
  Sender: FDA-Public Use
  Company Number: US-ELI_LILLY_AND_COMPANY-US201206007788

PATIENT
  Age: 35 Year
  Sex: Male

DRUGS (1)
  1. CYMBALTA [Suspect]
     Indication: ANXIETY
     Dosage: 30 MG, SINGLE

REACTIONS (4)
  - LOSS OF CONSCIOUSNESS [None]
  - FACIAL BONES FRACTURE [None]
  - DISORIENTATION [None]
  - AGGRESSION [None]
